FAERS Safety Report 9458509 (Version 2)
Quarter: 2013Q4

REPORT INFORMATION
  Report Type: Spontaneous
  Country: US (occurrence: US)
  Receive Date: 20130814
  Receipt Date: 20131226
  Transmission Date: 20140711
  Serious: Yes (Hospitalization)
  Sender: FDA-Public Use
  Company Number: US-BAYER-2013-098342

PATIENT
  Age: 37 Year
  Sex: Female
  Weight: 52.15 kg

DRUGS (11)
  1. YAZ [Suspect]
     Indication: PREMENSTRUAL SYNDROME
     Dosage: UNK
     Dates: start: 200901, end: 201208
  2. YAZ [Suspect]
     Indication: PREMENSTRUAL DYSPHORIC DISORDER
     Dosage: UNK
     Dates: start: 200908, end: 20120531
  3. YAZ [Suspect]
     Indication: ACNE
  4. GIANVI [Suspect]
     Indication: PREMENSTRUAL SYNDROME
     Dosage: UNK
     Dates: start: 20120809, end: 20121031
  5. GIANVI [Suspect]
     Indication: ACNE
  6. ALEVE [Concomitant]
     Indication: MYALGIA
     Dosage: 200 MG, UNK
  7. COLLAGEN [Concomitant]
     Dosage: 500 MG, UNK
     Dates: start: 201204, end: 201206
  8. MULTIVITAMIN [Concomitant]
     Indication: ROUTINE HEALTH MAINTENANCE
     Dosage: 1 DF, UNK
  9. CITRACAL + D [CALCIUM CITRATE,COLECALCIFEROL] [Concomitant]
     Dosage: 250-200 MG UNIT
     Dates: start: 20120905
  10. AMOXICILLIN W/CLAVULANIC ACID [Concomitant]
     Dosage: 875 MG - 125 MG
     Dates: start: 20121026
  11. FLUTICASONE [Concomitant]
     Dosage: 50 MCG/24HR, UNK
     Dates: start: 20121026

REACTIONS (4)
  - Intracranial venous sinus thrombosis [None]
  - Thrombosis [None]
  - Mental disorder [None]
  - Emotional distress [None]
